FAERS Safety Report 15074720 (Version 1)
Quarter: 2018Q2

REPORT INFORMATION
  Report Type: Spontaneous
  Country: US (occurrence: US)
  Receive Date: 20180627
  Receipt Date: 20180627
  Transmission Date: 20180711
  Serious: Yes (Other)
  Sender: FDA-Public Use
  Company Number: US-SAOL THERAPEUTICS-2017SAO01153

PATIENT
  Sex: Male

DRUGS (3)
  1. LIORESAL [Suspect]
     Active Substance: BACLOFEN
     Indication: BRAIN INJURY
     Dosage: 809.3 ?G, \DAY
     Route: 037
  2. LIORESAL [Suspect]
     Active Substance: BACLOFEN
     Indication: MUSCLE SPASTICITY
     Dosage: 809 ?G, \DAY
     Route: 037
  3. ZONEGRAN [Suspect]
     Active Substance: ZONISAMIDE

REACTIONS (6)
  - Weight decreased [Recovering/Resolving]
  - Dysuria [Unknown]
  - Drug withdrawal syndrome [Unknown]
  - Dystonia [Unknown]
  - Torticollis [Unknown]
  - Hypertonia [Unknown]

NARRATIVE: CASE EVENT DATE: 2016
